FAERS Safety Report 4392512-4 (Version None)
Quarter: 2004Q3

REPORT INFORMATION
  Report Type: 
  Country: None (occurrence: None)
  Receive Date: 20040702
  Receipt Date: 20040225
  Transmission Date: 20050211
  Serious: Yes (Other)
  Sender: FDA-Public Use
  Company Number: 2004UW03303

PATIENT
  Age: 62 Year
  Sex: Male
  Weight: 81.6475 kg

DRUGS (1)
  1. CRESTOR [Suspect]
     Indication: BLOOD CHOLESTEROL INCREASED

REACTIONS (2)
  - BLOOD URIC ACID INCREASED [None]
  - PAIN EXACERBATED [None]
